FAERS Safety Report 5971225-9 (Version None)
Quarter: 2008Q4

REPORT INFORMATION
  Report Type: 
  Country: None (occurrence: None)
  Receive Date: 20081128
  Receipt Date: 20081121
  Transmission Date: 20090506
  Serious: Yes (Hospitalization, Other)
  Sender: FDA-Public Use
  Company Number: JP-PFIZER INC-2008087546

PATIENT
  Age: 47 Year
  Sex: Male

DRUGS (3)
  1. SOLANAX [Suspect]
     Indication: MALAISE
  2. AMOXAPINE [Suspect]
     Indication: DEPRESSION
     Route: 048
  3. AMOXAPINE [Suspect]
     Indication: IRRITABLE BOWEL SYNDROME

REACTIONS (2)
  - LIVER DISORDER [None]
  - NEUROLEPTIC MALIGNANT SYNDROME [None]
